FAERS Safety Report 4964396-4 (Version None)
Quarter: 2006Q2

REPORT INFORMATION
  Report Type: 
  Country: None (occurrence: None)
  Receive Date: 20060406
  Receipt Date: 20060324
  Transmission Date: 20061013
  Serious: Yes (Hospitalization, Other)
  Sender: FDA-Public Use
  Company Number: PHNU2006DE01470

PATIENT
  Age: 62 Year
  Sex: Male

DRUGS (5)
  1. SANDIMMUNE [Suspect]
     Indication: RENAL TRANSPLANT
     Dosage: 200 MG DAILY
     Route: 048
     Dates: start: 19970101
  2. DECORTIN-H [Concomitant]
     Dosage: 2.5 MG DAILY
     Route: 048
  3. BISOPROLOL [Concomitant]
  4. CRANOC [Concomitant]
  5. MAGNESIUM [Concomitant]

REACTIONS (15)
  - APHASIA [None]
  - ARTHROPATHY [None]
  - BLOOD CHOLESTEROL INCREASED [None]
  - BLOOD TRIGLYCERIDES INCREASED [None]
  - CARPAL TUNNEL SYNDROME [None]
  - DIFFICULTY IN WALKING [None]
  - DIZZINESS [None]
  - DRUG LEVEL FLUCTUATING [None]
  - FIBULA FRACTURE [None]
  - HEADACHE [None]
  - MYALGIA [None]
  - OEDEMA PERIPHERAL [None]
  - SPORTS INJURY [None]
  - TOOTHACHE [None]
  - WHITE BLOOD CELL COUNT INCREASED [None]
